FAERS Safety Report 7418987-1 (Version None)
Quarter: 2011Q2

REPORT INFORMATION
  Report Type: 
  Country: None (occurrence: None)
  Receive Date: 20110415
  Receipt Date: 20110411
  Transmission Date: 20111010
  Serious: Yes (Other)
  Sender: FDA-Public Use
  Company Number: A0920577A

PATIENT
  Sex: Male

DRUGS (5)
  1. RETROVIR [Concomitant]
     Indication: ANTIVIRAL TREATMENT
     Dosage: 2MGKH SINGLE DOSE
     Route: 064
     Dates: start: 20110225, end: 20110225
  2. KALETRA [Suspect]
     Indication: ANTIVIRAL TREATMENT
     Dosage: 4TAB PER DAY
     Route: 064
     Dates: start: 20100912
  3. TRUVADA [Suspect]
     Indication: ANTIVIRAL TREATMENT
     Dosage: 1TAB PER DAY
     Route: 064
     Dates: start: 20101210
  4. RETROVIR [Concomitant]
     Dosage: 1MGKH SINGLE DOSE
     Route: 064
     Dates: start: 20110225, end: 20110225
  5. COMBIVIR [Suspect]
     Indication: ANTIVIRAL TREATMENT
     Dosage: 2TAB PER DAY
     Route: 064
     Dates: start: 20100912, end: 20101210

REACTIONS (5)
  - ATRIOVENTRICULAR SEPTAL DEFECT [None]
  - BRACHYCEPHALY [None]
  - TRISOMY 21 [None]
  - PATENT DUCTUS ARTERIOSUS [None]
  - DRUG EXPOSURE DURING PREGNANCY [None]
